FAERS Safety Report 25854186 (Version 1)
Quarter: 2025Q3

REPORT INFORMATION
  Report Type: Spontaneous
  Country: US (occurrence: US)
  Receive Date: 20250926
  Receipt Date: 20250926
  Transmission Date: 20251020
  Serious: No
  Sender: PFIZER
  Company Number: US-PFIZER INC-PV202300155441

PATIENT
  Sex: Female

DRUGS (4)
  1. PAXLOVID [Suspect]
     Active Substance: NIRMATRELVIR\RITONAVIR
     Indication: COVID-19 treatment
  2. CARBAMAZEPINE [Concomitant]
     Active Substance: CARBAMAZEPINE
  3. QUETIAPINE [Concomitant]
     Active Substance: QUETIAPINE
  4. CLOZAPINE [Concomitant]
     Active Substance: CLOZAPINE

REACTIONS (1)
  - Contraindicated product administered [Unknown]
